FAERS Safety Report 6603341-2 (Version None)
Quarter: 2010Q1

REPORT INFORMATION
  Report Type: 
  Country: None (occurrence: None)
  Receive Date: 20100226
  Receipt Date: 20090209
  Transmission Date: 20100710
  Serious: No
  Sender: FDA-Public Use
  Company Number: A0767710A

PATIENT
  Sex: Female

DRUGS (4)
  1. VALTREX [Suspect]
     Dosage: 500MG PER DAY
     Route: 048
     Dates: start: 20010101
  2. LOVASTATIN [Concomitant]
  3. THYROID MEDICATION [Concomitant]
  4. CLOBETASOL PROPIONATE [Concomitant]

REACTIONS (4)
  - DRUG INEFFECTIVE [None]
  - EYELID MARGIN CRUSTING [None]
  - RASH [None]
  - URTICARIA [None]
